FAERS Safety Report 7987802-X (Version None)
Quarter: 2011Q4

REPORT INFORMATION
  Report Type: 
  Country: None (occurrence: None)
  Receive Date: 20111216
  Receipt Date: 20101109
  Transmission Date: 20120403
  Serious: No
  Sender: FDA-Public Use
  Company Number: US-BRISTOL-MYERS SQUIBB COMPANY-15375546

PATIENT
  Age: 3 Decade
  Sex: Male

DRUGS (2)
  1. LITHIUM CARBONATE [Concomitant]
  2. ABILIFY [Suspect]
     Dosage: 1 DF=15 TO 20MG INTERRUPTED AND RESTARTED

REACTIONS (1)
  - HEPATIC ENZYME INCREASED [None]
